FAERS Safety Report 14484294 (Version 1)
Quarter: 2018Q1

REPORT INFORMATION
  Report Type: Spontaneous
  Country: FR (occurrence: FR)
  Receive Date: 20180205
  Receipt Date: 20180205
  Transmission Date: 20180509
  Serious: Yes (Other)
  Sender: FDA-Public Use
  Company Number: FR-MERCK KGAA-2041373

PATIENT
  Age: 53 Year
  Sex: Female
  Weight: 51 kg

DRUGS (1)
  1. NOVOTHYROX [Suspect]
     Active Substance: LEVOTHYROXINE SODIUM
     Indication: HYPOTHYROIDISM
     Route: 048
     Dates: start: 201703

REACTIONS (17)
  - Hypertension [None]
  - Insomnia [None]
  - Disturbance in attention [None]
  - Eye disorder [None]
  - Hot flush [None]
  - Blood thyroid stimulating hormone decreased [None]
  - Urticaria [None]
  - Arthralgia [None]
  - Memory impairment [None]
  - Palpitations [None]
  - Pain in extremity [None]
  - Asthenia [None]
  - Agitation [None]
  - Alopecia [None]
  - Vertigo [None]
  - Speech disorder [None]
  - Bruxism [None]

NARRATIVE: CASE EVENT DATE: 201703
